FAERS Safety Report 18048941 (Version 2)
Quarter: 2021Q4

REPORT INFORMATION
  Report Type: Other
  Country: IT (occurrence: None)
  Receive Date: 20200721
  Receipt Date: 20211210
  Transmission Date: 20220304
  Serious: Yes (Death, Other)
  Sender: FDA-Public Use
  Company Number: IT-ROCHE-2637717

PATIENT
  Age: 62 Year

DRUGS (9)
  1. TOCILIZUMAB [Suspect]
     Active Substance: TOCILIZUMAB
     Indication: COVID-19
     Dosage: FOR A TOTAL OF TWO DOSES
     Route: 042
  2. TOCILIZUMAB [Suspect]
     Active Substance: TOCILIZUMAB
     Indication: Acute respiratory failure
  3. TOCILIZUMAB [Suspect]
     Active Substance: TOCILIZUMAB
     Indication: Acute respiratory distress syndrome
  4. TOCILIZUMAB [Suspect]
     Active Substance: TOCILIZUMAB
     Indication: Cytokine storm
  5. CHLOROQUINE [Concomitant]
     Active Substance: CHLOROQUINE
     Indication: COVID-19
  6. DARUNAVIR [Concomitant]
     Active Substance: DARUNAVIR
     Indication: COVID-19
  7. VITAMIN C [Concomitant]
     Active Substance: ASCORBIC ACID
  8. ACETYLCYSTEINE [Concomitant]
     Active Substance: ACETYLCYSTEINE
  9. UNSPECIFIED INGREDIENT [Concomitant]
     Active Substance: UNSPECIFIED INGREDIENT

REACTIONS (3)
  - Hepatitis acute [Fatal]
  - Herpes simplex reactivation [Unknown]
  - Off label use [Unknown]
